FAERS Safety Report 9000246 (Version 3)
Quarter: 2013Q2

REPORT INFORMATION
  Report Type: Spontaneous
  Country: CH (occurrence: CH)
  Receive Date: 20130106
  Receipt Date: 20130418
  Transmission Date: 20140414
  Serious: Yes (Life-Threatening, Hospitalization)
  Sender: FDA-Public Use
  Company Number: CH-JNJFOC-20130101511

PATIENT
  Age: 90 Year
  Sex: Female

DRUGS (18)
  1. ZALDIAR [Suspect]
     Indication: PAIN
     Route: 048
     Dates: start: 20121204
  2. ZALDIAR [Suspect]
     Indication: PAIN
     Dosage: 325 MG 4 TIMES A DAY
     Route: 048
     Dates: start: 20121207, end: 20121209
  3. XARELTO [Suspect]
     Indication: PRODUCT USED FOR UNKNOWN INDICATION
     Dosage: 10 MG CUMULATIVE DOSE
     Route: 048
     Dates: start: 20121207, end: 20121209
  4. PARACETAMOL [Suspect]
     Route: 048
  5. PARACETAMOL [Suspect]
     Indication: PAIN
     Dosage: 4 DOSES A DAY
     Route: 048
     Dates: start: 20121205, end: 20121209
  6. REMINYL [Suspect]
     Indication: PRODUCT USED FOR UNKNOWN INDICATION
     Route: 048
     Dates: end: 20121211
  7. ESOMEPRAZOLE [Suspect]
     Indication: PRODUCT USED FOR UNKNOWN INDICATION
     Route: 048
     Dates: start: 20121205, end: 20121209
  8. FLAGYL [Suspect]
     Indication: PRODUCT USED FOR UNKNOWN INDICATION
     Dosage: 2000 MG ONCE A DAY
     Route: 048
     Dates: start: 20121205, end: 20121209
  9. CIPRALEX [Suspect]
     Indication: PRODUCT USED FOR UNKNOWN INDICATION
     Route: 048
     Dates: end: 20121206
  10. INEGY [Suspect]
     Indication: PRODUCT USED FOR UNKNOWN INDICATION
     Route: 048
     Dates: end: 20121208
  11. ZOLPIDEM [Suspect]
     Indication: PRODUCT USED FOR UNKNOWN INDICATION
     Route: 048
  12. ROCEPHIN [Suspect]
     Indication: PRODUCT USED FOR UNKNOWN INDICATION
     Dosage: 500 MG 3 TIMES A DAY
     Route: 048
     Dates: start: 20121205, end: 20121209
  13. AMLODIPINE [Suspect]
     Indication: PRODUCT USED FOR UNKNOWN INDICATION
     Route: 048
     Dates: end: 20121208
  14. IBUPROFEN [Concomitant]
     Route: 048
  15. OMEPRAZOLE [Concomitant]
     Route: 048
  16. CALCIPARIN [Concomitant]
     Indication: THROMBOSIS PROPHYLAXIS
     Route: 065
     Dates: start: 20121205, end: 20121209
  17. CALCIMAGON D3 [Concomitant]
     Route: 048
  18. PREDNISOLONE [Concomitant]
     Route: 048

REACTIONS (1)
  - Hepatocellular injury [Recovered/Resolved]
